FAERS Safety Report 17964424 (Version 2)
Quarter: 2020Q3

REPORT INFORMATION
  Report Type: Spontaneous
  Country: US (occurrence: US)
  Receive Date: 20200630
  Receipt Date: 20200710
  Transmission Date: 20201103
  Serious: Yes (Other)
  Sender: FDA-Public Use
  Company Number: US-NOVA LABORATORIES LIMITED-2086895

PATIENT
  Age: 4 Year
  Sex: Female
  Weight: 18.01 kg

DRUGS (7)
  1. DIFLUCAN [Suspect]
     Active Substance: FLUCONAZOLE
  2. CYTARABINE (CYTARABINE) [Suspect]
     Active Substance: CYTARABINE
  3. PERIDEX [Suspect]
     Active Substance: CHLORHEXIDINE GLUCONATE
  4. PURIXAN [Suspect]
     Active Substance: MERCAPTOPURINE
     Dates: start: 20200623
  5. CYTOXAN [Suspect]
     Active Substance: CYCLOPHOSPHAMIDE
  6. PURIXAN [Suspect]
     Active Substance: MERCAPTOPURINE
     Indication: ACUTE LEUKAEMIA
     Dates: start: 20200515
  7. BACTRIM [Suspect]
     Active Substance: SULFAMETHOXAZOLE\TRIMETHOPRIM

REACTIONS (1)
  - Neutrophil count decreased [Recovered/Resolved]

NARRATIVE: CASE EVENT DATE: 20200615
